FAERS Safety Report 6266299-4 (Version None)
Quarter: 2009Q3

REPORT INFORMATION
  Report Type: 
  Country: None (occurrence: None)
  Receive Date: 20090713
  Receipt Date: 20090707
  Transmission Date: 20100115
  Serious: Yes (Death, Hospitalization)
  Sender: FDA-Public Use
  Company Number: PHHY2009JP02688

PATIENT
  Sex: Male
  Weight: 51 kg

DRUGS (20)
  1. EXJADE [Suspect]
     Indication: IRON OVERLOAD
     Dosage: 1000 MG DAILY
     Route: 048
     Dates: start: 20080717, end: 20081224
  2. EXJADE [Suspect]
     Dosage: 1500 MG DAILY
     Route: 048
     Dates: start: 20081225, end: 20081228
  3. LAXOBERON [Concomitant]
     Dosage: 5 MG, UNK
     Route: 048
     Dates: start: 20080717, end: 20081228
  4. LENDORMIN [Concomitant]
     Dosage: 0.25 MG, UNK
     Route: 048
     Dates: start: 20080717, end: 20081228
  5. MICARDIS [Concomitant]
     Dosage: 40 MG, UNK
     Route: 048
     Dates: start: 20070717, end: 20081228
  6. SEVELAMER HYDROCHLORIDE [Concomitant]
     Indication: PROPHYLAXIS
     Dosage: UNK
     Dates: start: 20070717, end: 20081228
  7. GLUCOBAY [Concomitant]
     Dosage: 300 MG, UNK
     Route: 048
     Dates: start: 20070717, end: 20081228
  8. ARTIST [Concomitant]
     Dosage: 2.5 MG, UNK
     Route: 048
     Dates: start: 20070717, end: 20081228
  9. OMEPRAL [Concomitant]
     Dosage: 20 MG, UNK
     Route: 048
     Dates: start: 20070717, end: 20081228
  10. GLIMICRON [Concomitant]
     Dosage: 40 MG, UNK
     Route: 048
     Dates: start: 20070717, end: 20081228
  11. PRIMOBOLAN [Concomitant]
     Indication: MYELODYSPLASTIC SYNDROME
     Dosage: 20 MG, UNK
     Route: 048
     Dates: start: 20070717, end: 20081228
  12. PRIMPERAN [Concomitant]
     Dosage: 10 MG, UNK
     Route: 048
     Dates: start: 20070717, end: 20081228
  13. ADALAT CC [Concomitant]
     Dosage: 40 MG, UNK
     Route: 048
     Dates: start: 20070717, end: 20081228
  14. SIGMART [Concomitant]
     Dosage: 15 MG, UNK
     Route: 048
     Dates: start: 20070717, end: 20081228
  15. GLAKAY [Concomitant]
     Indication: PROPHYLAXIS
     Dosage: 45 MG, UNK
     Route: 048
     Dates: start: 20070717, end: 20081228
  16. CALCIUM CARBONATE [Concomitant]
     Dosage: 1500 MG, UNK
     Route: 048
     Dates: start: 20070717, end: 20081228
  17. GASMOTIN [Concomitant]
     Dosage: 15 MG, UNK
     Route: 048
     Dates: start: 20070717, end: 20081228
  18. OPALMON [Concomitant]
     Dosage: 15 UG, UNK
     Route: 048
     Dates: start: 20070717, end: 20081228
  19. PURSENNID [Concomitant]
     Dosage: 60 MG, UNK
     Route: 048
     Dates: start: 20070717, end: 20081228
  20. RED BLOOD CELLS [Concomitant]
     Dosage: 2 UNITS EVERY 9-10 DAYS
     Dates: start: 20080723, end: 20081227

REACTIONS (11)
  - ALANINE AMINOTRANSFERASE INCREASED [None]
  - ANAEMIA [None]
  - ASPARTATE AMINOTRANSFERASE INCREASED [None]
  - BRAIN NATRIURETIC PEPTIDE INCREASED [None]
  - CARDIO-RESPIRATORY ARREST [None]
  - EOSINOPHIL COUNT INCREASED [None]
  - GAMMA-GLUTAMYLTRANSFERASE INCREASED [None]
  - PSEUDOMEMBRANOUS COLITIS [None]
  - RENAL FAILURE CHRONIC [None]
  - SEPSIS [None]
  - WHITE BLOOD CELL COUNT DECREASED [None]
